FAERS Safety Report 9382018 (Version 1)
Quarter: 2013Q3

REPORT INFORMATION
  Report Type: Spontaneous
  Country: DK (occurrence: FR)
  Receive Date: 20130703
  Receipt Date: 20130703
  Transmission Date: 20140515
  Serious: Yes (Hospitalization)
  Sender: FDA-Public Use
  Company Number: FR-FRI-1000046395

PATIENT
  Age: 40 Year
  Sex: Female

DRUGS (6)
  1. ESCITALOPRAM [Suspect]
     Indication: PERSONALITY DISORDER
     Route: 048
     Dates: start: 20130514, end: 20130529
  2. TERCIAN [Suspect]
     Indication: PERSONALITY DISORDER
     Route: 048
     Dates: start: 20130509, end: 20130604
  3. BENZODIAZEPINE [Concomitant]
     Dates: start: 20130509
  4. XEROQUEL [Concomitant]
     Indication: PERSONALITY DISORDER
     Route: 048
     Dates: start: 20130527, end: 20130529
  5. XEROQUEL [Concomitant]
     Dosage: 50 MG
     Route: 048
     Dates: start: 20130604
  6. XEROQUEL [Concomitant]
     Dosage: 100 MG
     Route: 048
     Dates: start: 20130610

REACTIONS (1)
  - Mixed liver injury [Recovered/Resolved]
